FAERS Safety Report 5041204-7 (Version None)
Quarter: 2006Q3

REPORT INFORMATION
  Report Type: 
  Country: None (occurrence: None)
  Receive Date: 20060703
  Receipt Date: 20050930
  Transmission Date: 20061208
  Serious: Yes (Other)
  Sender: FDA-Public Use
  Company Number: FR-GLAXOSMITHKLINE-B0396113A

PATIENT
  Age: 16 Year
  Sex: Female

DRUGS (5)
  1. SERETIDE [Suspect]
     Indication: ASTHMA
     Route: 055
     Dates: start: 20030901, end: 20050701
  2. CORTICOID [Concomitant]
     Indication: ASTHMA
     Route: 048
     Dates: start: 20041201, end: 20041201
  3. SINGULAIR [Concomitant]
     Indication: ASTHMA
     Route: 048
     Dates: start: 20030901
  4. NASACORT [Concomitant]
     Indication: ASTHMA
     Route: 045
     Dates: start: 20030901
  5. CLARYTINE [Concomitant]
     Indication: ASTHMA
     Route: 048
     Dates: start: 20030901

REACTIONS (6)
  - CAPILLARY DISORDER [None]
  - CUSHING'S SYNDROME [None]
  - CUSHINGOID [None]
  - FAT TISSUE INCREASED [None]
  - LIPOHYPERTROPHY [None]
  - WEIGHT INCREASED [None]
